FAERS Safety Report 4673595-0 (Version None)
Quarter: 2005Q2

REPORT INFORMATION
  Report Type: 
  Country: None (occurrence: None)
  Receive Date: 20050523
  Receipt Date: 20050512
  Transmission Date: 20051028
  Serious: Yes (Hospitalization, Other)
  Sender: FDA-Public Use
  Company Number: USA-2005-0020245

PATIENT
  Age: 51 Year
  Sex: Female
  Weight: 69.4 kg

DRUGS (16)
  1. MS CONTIN [Suspect]
     Indication: ARTHRALGIA
     Dosage: 20 MG
  2. OXYCONTIN [Suspect]
  3. PROVIGIL [Suspect]
     Indication: SLEEP APNOEA SYNDROME
     Dosage: 200 MG DAILY, ORAL
     Route: 048
     Dates: start: 20050201, end: 20050201
  4. PROVIGIL [Suspect]
     Indication: SLEEP APNOEA SYNDROME
     Dosage: 200 MG, DAILY, ORAL
     Route: 048
     Dates: start: 20050301, end: 20050301
  5. PROVIGIL [Suspect]
     Indication: SLEEP APNOEA SYNDROME
     Dosage: 100 MG, DAILY, ORAL
     Route: 048
     Dates: start: 20050301, end: 20050301
  6. PROVIGIL [Suspect]
     Indication: SLEEP APNOEA SYNDROME
     Dosage: 200 MG, DAILY, ORAL
     Route: 048
     Dates: start: 20050301
  7. PAXIL [Concomitant]
  8. XANAX [Concomitant]
  9. ZYRTEC [Concomitant]
  10. ESTRADIOL [Concomitant]
  11. MEDROXYPROGESTERONE [Concomitant]
  12. SINGULAIR  MERCK    (MONTELUKAST SODIUM) [Concomitant]
  13. ADVAIR SIDKUS (FLUTICASONE PROPIONATE) [Concomitant]
  14. FERROUS SULFATE TAB [Concomitant]
  15. MULTIVITAMINS (ERGOCALCIFEROL, ASCORBIC ACID, FOLIC ACID, RETINOL, THI [Concomitant]
  16. PERCODAN (OXYCODONE TEREPHTHALATE, PHENACETIN HOMATROPINE TEREPHTHALAT [Concomitant]

REACTIONS (24)
  - ARTHRITIS INFECTIVE [None]
  - BALANCE DISORDER [None]
  - BLOOD POTASSIUM DECREASED [None]
  - BLOOD PRESSURE INCREASED [None]
  - BREAST INFECTION [None]
  - CARDIOGENIC SHOCK [None]
  - CONTUSION [None]
  - CONVULSION [None]
  - DIZZINESS [None]
  - DRUG WITHDRAWAL SYNDROME [None]
  - DYSSTASIA [None]
  - EUPHORIC MOOD [None]
  - FALL [None]
  - HAEMATOCRIT ABNORMAL [None]
  - HEAD INJURY [None]
  - HEART RATE DECREASED [None]
  - HEART RATE INCREASED [None]
  - HYPERSENSITIVITY [None]
  - OVERDOSE [None]
  - PYREXIA [None]
  - RESPIRATORY ARREST [None]
  - RESPIRATORY RATE INCREASED [None]
  - STAPHYLOCOCCAL SEPSIS [None]
  - TREMOR [None]
